FAERS Safety Report 5465856-2 (Version None)
Quarter: 2007Q3

REPORT INFORMATION
  Report Type: 
  Country: None (occurrence: None)
  Receive Date: 20070924
  Receipt Date: 20070919
  Transmission Date: 20080115
  Serious: Yes (Other)
  Sender: FDA-Public Use
  Company Number: PHEH2007US09881

PATIENT
  Sex: Female

DRUGS (2)
  1. AVAPRO [Suspect]
     Route: 048
  2. TEKTURNA [Suspect]
     Route: 048

REACTIONS (4)
  - ABDOMINAL DISTENSION [None]
  - ATRIOVENTRICULAR BLOCK SECOND DEGREE [None]
  - BLOOD PRESSURE DECREASED [None]
  - WEIGHT INCREASED [None]
